FAERS Safety Report 5606139-7 (Version None)
Quarter: 2008Q1

REPORT INFORMATION
  Report Type: 
  Country: None (occurrence: None)
  Receive Date: 20080129
  Receipt Date: 20070702
  Transmission Date: 20080703
  Serious: No
  Sender: FDA-Public Use
  Company Number: A0573487A

PATIENT
  Age: 41 Year
  Sex: Female

DRUGS (3)
  1. WELLBUTRIN [Suspect]
     Indication: DEPRESSION
     Dosage: 100MG FOUR TIMES PER DAY
     Route: 048
     Dates: start: 20020601, end: 20060101
  2. CELEXA [Suspect]
     Indication: DRUG USE FOR UNKNOWN INDICATION
  3. ACIPHEX [Concomitant]

REACTIONS (6)
  - ABNORMAL DREAMS [None]
  - BRUXISM [None]
  - DRUG INEFFECTIVE [None]
  - FEELING JITTERY [None]
  - TENSION [None]
  - WEIGHT DECREASED [None]
